FAERS Safety Report 21154555 (Version 30)
Quarter: 2024Q1

REPORT INFORMATION
  Report Type: Spontaneous
  Country: CA (occurrence: CA)
  Receive Date: 20220801
  Receipt Date: 20240214
  Transmission Date: 20240409
  Serious: Yes (Hospitalization, Other)
  Sender: FDA-Public Use
  Company Number: CA-CELLTRION INC.-2022CA003226

PATIENT

DRUGS (22)
  1. INFLECTRA [Suspect]
     Active Substance: INFLIXIMAB-DYYB
     Indication: Crohn^s disease
     Dosage: 7500 UG/KG (7.5 MG/KG), EVERY 4 WEEKS
     Route: 042
     Dates: start: 20220623
  2. INFLECTRA [Suspect]
     Active Substance: INFLIXIMAB-DYYB
     Indication: Rheumatoid arthritis
     Dosage: 7500 UG/KG (7.5 MG/KG), EVERY 4 WEEKS
     Route: 042
     Dates: start: 20220721
  3. INFLECTRA [Suspect]
     Active Substance: INFLIXIMAB-DYYB
     Dosage: 7500 UG/KG (7.5 MG/KG), EVERY 4 WEEKS
     Route: 042
     Dates: start: 20220818
  4. INFLECTRA [Suspect]
     Active Substance: INFLIXIMAB-DYYB
     Dosage: 7500 UG/KG (7.5 MG/KG), EVERY 4 WEEKS)
     Route: 042
     Dates: start: 20220915
  5. INFLECTRA [Suspect]
     Active Substance: INFLIXIMAB-DYYB
     Dosage: 7.5 MG/KG, EVERY 4 WEEKS
     Route: 042
     Dates: start: 20221012
  6. INFLECTRA [Suspect]
     Active Substance: INFLIXIMAB-DYYB
     Dosage: 7.5 MG/KG, EVERY 4 WEEKS
     Route: 042
     Dates: start: 20221128
  7. INFLECTRA [Suspect]
     Active Substance: INFLIXIMAB-DYYB
     Dosage: 7.5 MG/KG, 7 WEEKS AND 5 DAYS AFTER LAST INFUSION (PRESCRIBED INFUSIONS ARE EVERY 4 WEEKS)
     Route: 042
     Dates: start: 20221205
  8. INFLECTRA [Suspect]
     Active Substance: INFLIXIMAB-DYYB
     Dosage: 7.5 MG/KG, 7 WEEKS AND 5 DAYS AFTER LAST INFUSION (PRESCRIBED INFUSIONS ARE EVERY 4 WEEKS)
     Route: 042
     Dates: start: 20230104
  9. INFLECTRA [Suspect]
     Active Substance: INFLIXIMAB-DYYB
     Dosage: 500 MG (7.5 MG/KG), EVERY 4 WEEKS
     Route: 042
     Dates: start: 20230131
  10. INFLECTRA [Suspect]
     Active Substance: INFLIXIMAB-DYYB
     Dosage: 500 MG (7.5MG/KG ROUNDED TO NEAREST HUNDRED), EVERY 4 WEEKS
     Route: 042
     Dates: start: 20230228
  11. INFLECTRA [Suspect]
     Active Substance: INFLIXIMAB-DYYB
     Dosage: 500 MG, 11 WEEKS AND 3 DAYS (7.5MG/KG EVERY 4 WEEKS)
     Route: 042
     Dates: start: 20230519
  12. INFLECTRA [Suspect]
     Active Substance: INFLIXIMAB-DYYB
     Dosage: 500 MG, EVERY 4 WEEKS
     Route: 042
     Dates: start: 20230622
  13. INFLECTRA [Suspect]
     Active Substance: INFLIXIMAB-DYYB
     Dosage: 500 MG (7.5 MG/KG), EVERY 4 WEEKS
     Route: 042
     Dates: start: 20230719
  14. INFLECTRA [Suspect]
     Active Substance: INFLIXIMAB-DYYB
     Dosage: 10 MG/KG, EVERY 4 WEEKS (ROUNDED TO THE NEAREST HUNDRED)
     Route: 042
     Dates: start: 20230817
  15. INFLECTRA [Suspect]
     Active Substance: INFLIXIMAB-DYYB
     Dosage: 10 MG/KG, EVERY 4 WEEKS (ROUNDED TO THE NEAREST HUNDRED)
     Route: 042
     Dates: start: 20230913
  16. INFLECTRA [Suspect]
     Active Substance: INFLIXIMAB-DYYB
     Dosage: 700 MG, 5 WEEKS AND 1 DAY (10 MG/KG, EVERY 4 WEEKS (ROUNDED TO THE NEAREST HUNDRED)
     Route: 042
     Dates: start: 20231019
  17. INFLECTRA [Suspect]
     Active Substance: INFLIXIMAB-DYYB
     Dosage: 10MG/KG, EVERY 4 WEEKS
     Route: 042
     Dates: start: 20231114
  18. INFLECTRA [Suspect]
     Active Substance: INFLIXIMAB-DYYB
     Dosage: 10MG/KG, EVERY 4 WEEKS (700MG EVERY 4 WEEKS)
     Route: 042
     Dates: start: 20231211
  19. INFLECTRA [Suspect]
     Active Substance: INFLIXIMAB-DYYB
     Dosage: 10MG/KG, EVERY 4 WEEKS, ROUNDED TO THE NEAREST HUNDRED
     Route: 042
     Dates: start: 20240109
  20. CANNABIS SATIVA SUBSP. INDICA TOP [Concomitant]
     Active Substance: CANNABIS SATIVA SUBSP. INDICA TOP
     Dosage: 1 DF, DOSAGE NOT AVAILABLE
     Route: 065
  21. CORTISONE [Concomitant]
     Active Substance: CORTISONE
     Dosage: UNK
  22. METHOTREXATE [Concomitant]
     Active Substance: METHOTREXATE
     Dosage: 25 MG, WEEKLY

REACTIONS (43)
  - Anastomotic leak [Not Recovered/Not Resolved]
  - Intestinal resection [Not Recovered/Not Resolved]
  - Peritonitis [Recovered/Resolved]
  - Infection [Unknown]
  - Drain removal [Unknown]
  - Flap surgery [Unknown]
  - Abscess drainage [Recovering/Resolving]
  - Abscess drainage [Unknown]
  - Foot fracture [Recovering/Resolving]
  - Anal fistula [Unknown]
  - Intestinal stenosis [Not Recovered/Not Resolved]
  - Rectal abscess [Recovering/Resolving]
  - Anal abscess [Not Recovered/Not Resolved]
  - Crohn^s disease [Unknown]
  - Abscess [Recovered/Resolved]
  - Drug intolerance [Unknown]
  - Fistula [Not Recovered/Not Resolved]
  - Abdominal adhesions [Unknown]
  - Procedural pain [Not Recovered/Not Resolved]
  - Rectal discharge [Not Recovered/Not Resolved]
  - Illness [Not Recovered/Not Resolved]
  - Malaise [Not Recovered/Not Resolved]
  - Nasal discharge discolouration [Not Recovered/Not Resolved]
  - Feeling hot [Not Recovered/Not Resolved]
  - Hyperthermia [Recovered/Resolved]
  - Wound secretion [Recovered/Resolved]
  - Nasal congestion [Not Recovered/Not Resolved]
  - Wound [Recovered/Resolved]
  - Weight increased [Not Recovered/Not Resolved]
  - Cold sweat [Not Recovered/Not Resolved]
  - Spondyloarthropathy [Unknown]
  - Abdominal pain [Recovering/Resolving]
  - Influenza [Recovering/Resolving]
  - Pyrexia [Recovered/Resolved]
  - COVID-19 [Unknown]
  - Cough [Not Recovered/Not Resolved]
  - Nausea [Not Recovered/Not Resolved]
  - Heart rate increased [Not Recovered/Not Resolved]
  - Condition aggravated [Not Recovered/Not Resolved]
  - Erythema [Not Recovered/Not Resolved]
  - Therapeutic response shortened [Unknown]
  - Inappropriate schedule of product administration [Unknown]
  - Incorrect dose administered [Unknown]

NARRATIVE: CASE EVENT DATE: 20220101
